FAERS Safety Report 8585550-9 (Version None)
Quarter: 2012Q3

REPORT INFORMATION
  Report Type: 
  Country: None (occurrence: None)
  Receive Date: 20120810
  Receipt Date: 20120806
  Transmission Date: 20120928
  Serious: Yes (Life-Threatening, Hospitalization, Other)
  Sender: FDA-Public Use
  Company Number: CH-ELI_LILLY_AND_COMPANY-CH201207001968

PATIENT
  Sex: Male
  Weight: 80 kg

DRUGS (16)
  1. EFFIENT [Suspect]
     Indication: ACUTE CORONARY SYNDROME
     Dosage: 60 MG, LOADING DOSE
     Dates: start: 20100903, end: 20100903
  2. ASPIRIN [Concomitant]
     Dosage: 100 MG, UNK
  3. MORPHINE [Concomitant]
     Dosage: 10 MG, UNK
  4. BISOPROLOL FUMARATE [Concomitant]
     Dosage: 5 MG, UNK
  5. PANTOPRAZOLE [Concomitant]
     Dosage: 40 MG, UNK
  6. TORSEMIDE [Concomitant]
     Dosage: 10 MG, UNK
  7. SEROQUEL [Concomitant]
     Dosage: 25 MG, UNK
  8. ASPIRIN [Concomitant]
     Indication: ACUTE CORONARY SYNDROME
     Dosage: UNK, LOADING DOSE
     Dates: start: 20100903, end: 20100903
  9. AMLODIPINE [Concomitant]
     Dosage: 10 MG, UNK
  10. CRESTOR [Concomitant]
     Dosage: 5 MG, UNK
  11. ASPIRIN [Concomitant]
     Dosage: 100 MG, QD
     Dates: start: 20100904
  12. FENTANYL [Concomitant]
     Dosage: 6 UNK, UNK
  13. ATACAND HCT [Concomitant]
  14. EFFIENT [Suspect]
     Dosage: 10 MG, QD
     Dates: start: 20100904, end: 20110228
  15. ACETAMINOPHEN [Concomitant]
  16. ARANESP [Concomitant]
     Dosage: 40 UNK, UNK

REACTIONS (6)
  - PNEUMONIA [None]
  - RENAL ARTERY OCCLUSION [None]
  - CATHETER SITE HAEMORRHAGE [None]
  - RENAL FAILURE ACUTE [None]
  - RENAL ATROPHY [None]
  - AORTIC ANEURYSM [None]
